FAERS Safety Report 6974460-6 (Version None)
Quarter: 2010Q3

REPORT INFORMATION
  Report Type: 
  Country: None (occurrence: None)
  Receive Date: 20100824
  Receipt Date: 20100610
  Transmission Date: 20110219
  Serious: No
  Sender: FDA-Public Use
  Company Number: 308820

PATIENT
  Age: 62 Year
  Sex: Female

DRUGS (2)
  1. VICTOZA [Suspect]
     Indication: TYPE 2 DIABETES MELLITUS
     Dosage: 1.8 MG, QD, SUBCUTANEOUS ; 1.2 MG, QD, SUBCUTANEOUS
     Route: 058
  2. HUMALOG INSULIN (INSULIN LISPRO) [Concomitant]

REACTIONS (6)
  - DIARRHOEA [None]
  - GAIT DISTURBANCE [None]
  - HEART RATE INCREASED [None]
  - HYPOAESTHESIA [None]
  - PALPITATIONS [None]
  - SENSATION OF HEAVINESS [None]
